FAERS Safety Report 4551378-X (Version None)
Quarter: 2005Q1

REPORT INFORMATION
  Report Type: 
  Country: None (occurrence: None)
  Receive Date: 20050110
  Receipt Date: 20041227
  Transmission Date: 20050727
  Serious: Yes (Death, Congenital Anomaly)
  Sender: FDA-Public Use
  Company Number: 8008035

PATIENT

DRUGS (1)
  1. KEPPRA [Suspect]
     Indication: EPILEPSY
     Dosage: 11 G /D TRP
     Route: 064
     Dates: start: 20041001

REACTIONS (3)
  - CONGENITAL CARDIOVASCULAR ANOMALY [None]
  - DRUG EXPOSURE DURING PREGNANCY [None]
  - INTRA-UTERINE DEATH [None]
